FAERS Safety Report 12589832 (Version 2)
Quarter: 2016Q3

REPORT INFORMATION
  Report Type: Spontaneous
  Country: JP (occurrence: JP)
  Receive Date: 20160725
  Receipt Date: 20160808
  Transmission Date: 20161109
  Serious: Yes (Hospitalization, Other)
  Sender: FDA-Public Use
  Company Number: JP-UCBSA-2016027940

PATIENT

DRUGS (4)
  1. NEUPRO [Suspect]
     Active Substance: ROTIGOTINE
     Dosage: 20 MG, TOTAL, 2 PATCHES OF 8 MG AND 1 PATCH OF 4 MG
     Route: 062
  2. NEUPRO [Suspect]
     Active Substance: ROTIGOTINE
     Indication: PRODUCT USED FOR UNKNOWN INDICATION
     Dosage: DAILY DOSE:12 MG,(4 MG, 8 MG AT THE SAME TIME IN THE MORNING)
     Route: 062
  3. NEUPRO [Suspect]
     Active Substance: ROTIGOTINE
     Dosage: DAILY DOSE:12 MG (8 MG AT 10 AM, 4 MG AT BED TIME)
     Route: 062
  4. NEUPRO [Suspect]
     Active Substance: ROTIGOTINE
     Dosage: DAILY DOSE:12 MG,(2 PATCHES OF 6 MG)
     Route: 062
     Dates: start: 20160710

REACTIONS (9)
  - Loss of consciousness [Unknown]
  - Drug prescribing error [Unknown]
  - Accidental overdose [Unknown]
  - Wrong technique in product usage process [Unknown]
  - Sudden onset of sleep [Recovered/Resolved]
  - Abnormal behaviour [Unknown]
  - Skin discolouration [Unknown]
  - Decreased appetite [Unknown]
  - Product adhesion issue [Unknown]

NARRATIVE: CASE EVENT DATE: 201607
